FAERS Safety Report 23197066 (Version 1)
Quarter: 2023Q4

REPORT INFORMATION
  Report Type: Spontaneous
  Country: US (occurrence: US)
  Receive Date: 20231117
  Receipt Date: 20231117
  Transmission Date: 20240110
  Serious: Yes (Other)
  Sender: FDA-Public Use
  Company Number: US-ANIPHARMA-2023-US-038614

PATIENT
  Age: 43 Year
  Sex: Male

DRUGS (1)
  1. CORTICOTROPIN [Suspect]
     Active Substance: CORTICOTROPIN
     Indication: Gout
     Dosage: INJECT 40 UNITS (0.5ML) SUBCUTANEOUSLY ONCE AS NEEDED FOR GOUT FLARES *DISCARD 28 DAYS AFTER
     Route: 058

REACTIONS (1)
  - Knee arthroplasty [Unknown]
